FAERS Safety Report 13837564 (Version 1)
Quarter: 2017Q3

REPORT INFORMATION
  Report Type: Report from Study
  Country: CA (occurrence: CA)
  Receive Date: 20170804
  Receipt Date: 20170804
  Transmission Date: 20171127
  Serious: Yes (Other)
  Sender: FDA-Public Use
  Company Number: CA-ROCHE-1971873

PATIENT
  Age: 62 Year
  Sex: Female

DRUGS (9)
  1. CLOTRIMADERM [Concomitant]
     Route: 065
  2. SYMBICORT [Concomitant]
     Active Substance: BUDESONIDE\FORMOTEROL FUMARATE DIHYDRATE
     Route: 065
  3. SULFAZINE [Concomitant]
     Active Substance: SULFASALAZINE
     Route: 065
  4. OLMETEC [Concomitant]
     Active Substance: OLMESARTAN MEDOXOMIL
     Route: 065
  5. CELEBREX [Concomitant]
     Active Substance: CELECOXIB
     Route: 065
  6. ACTEMRA [Suspect]
     Active Substance: TOCILIZUMAB
     Indication: RHEUMATOID ARTHRITIS
     Route: 058
     Dates: start: 20170419
  7. LAX-A-DAY [Concomitant]
     Route: 065
  8. PANTOLOC [Concomitant]
     Active Substance: PANTOPRAZOLE SODIUM
     Route: 065
  9. FUCIDIN [Concomitant]
     Active Substance: FUSIDIC ACID
     Route: 065

REACTIONS (5)
  - Arthralgia [Recovered/Resolved]
  - Tension [Recovered/Resolved]
  - Joint swelling [Recovering/Resolving]
  - Haematoma [Recovering/Resolving]
  - Fall [Unknown]

NARRATIVE: CASE EVENT DATE: 201705
